FAERS Safety Report 25033255 (Version 1)
Quarter: 2025Q1

REPORT INFORMATION
  Report Type: Spontaneous
  Country: IN (occurrence: IN)
  Receive Date: 20250303
  Receipt Date: 20250303
  Transmission Date: 20250409
  Serious: Yes (Death, Other)
  Sender: GE HEALTHCARE
  Company Number: IN-GE HEALTHCARE-2025CSU002104

PATIENT

DRUGS (1)
  1. OMNIPAQUE [Suspect]
     Active Substance: IOHEXOL
     Indication: Diagnostic procedure
     Route: 065
     Dates: start: 20250219, end: 20250219

REACTIONS (2)
  - Lung disorder [Fatal]
  - Chills [Unknown]

NARRATIVE: CASE EVENT DATE: 20250219
